FAERS Safety Report 13752594 (Version 2)
Quarter: 2018Q1

REPORT INFORMATION
  Report Type: Spontaneous
  Country: US (occurrence: US)
  Receive Date: 20170713
  Receipt Date: 20180220
  Transmission Date: 20180508
  Serious: Yes (Hospitalization, Disabling, Other)
  Sender: FDA-Public Use
  Company Number: US-JNJFOC-20170708866

PATIENT
  Age: 62 Year
  Sex: Male
  Weight: 87.23 kg

DRUGS (1)
  1. INVOKANA [Suspect]
     Active Substance: CANAGLIFLOZIN
     Indication: PRODUCT USED FOR UNKNOWN INDICATION
     Route: 048
     Dates: start: 201412

REACTIONS (7)
  - Foot amputation [Unknown]
  - Osteomyelitis [Unknown]
  - Acute myocardial infarction [Recovering/Resolving]
  - Foot amputation [Unknown]
  - Leg amputation [Unknown]
  - Gangrene [Unknown]
  - Toe amputation [Unknown]

NARRATIVE: CASE EVENT DATE: 20141223
